FAERS Safety Report 24240679 (Version 1)
Quarter: 2024Q3

REPORT INFORMATION
  Report Type: Spontaneous
  Country: JP (occurrence: JP)
  Receive Date: 20240823
  Receipt Date: 20240823
  Transmission Date: 20241017
  Serious: Yes (Hospitalization, Other)
  Sender: AMGEN
  Company Number: JP-KYOWAKIRIN-2024KK019144

PATIENT
  Sex: Male

DRUGS (5)
  1. FILGRASTIM [Suspect]
     Active Substance: FILGRASTIM
     Indication: Neutrophil count decreased
     Dosage: UNK, SINGLE
     Route: 058
  2. FILGRASTIM [Suspect]
     Active Substance: FILGRASTIM
     Indication: White blood cell count decreased
     Dosage: UNK
     Route: 065
  3. CLOZARIL [Concomitant]
     Active Substance: CLOZAPINE
     Indication: Hallucination, auditory
     Dosage: 175 MG, BID, AFTER BREAKFAST AND DINNER
     Route: 065
  4. CLOZARIL [Concomitant]
     Active Substance: CLOZAPINE
     Dosage: 200 MG, BID, AFTER BREAKFAST AND DINNER
     Route: 065
  5. LITHIUM CARBONATE [Concomitant]
     Active Substance: LITHIUM CARBONATE
     Indication: Product used for unknown indication
     Dosage: UNK
     Route: 048

REACTIONS (3)
  - Hospitalisation [Unknown]
  - Schizoaffective disorder [Unknown]
  - Off label use [Unknown]
